FAERS Safety Report 7805606-5 (Version None)
Quarter: 2011Q4

REPORT INFORMATION
  Report Type: 
  Country: None (occurrence: None)
  Receive Date: 20111010
  Receipt Date: 20111005
  Transmission Date: 20120403
  Serious: Yes (Other)
  Sender: FDA-Public Use
  Company Number: US-AMGEN-USACT2011051523

PATIENT
  Age: 47 Year
  Sex: Male

DRUGS (8)
  1. PLAVIX [Concomitant]
     Dosage: 75 MG, QD
     Route: 048
     Dates: start: 20100901
  2. DENOSUMAB [Suspect]
     Indication: BONE GIANT CELL TUMOUR
     Dosage: 120 MG, Q4WK
     Route: 058
     Dates: start: 20101209
  3. LOVAZA [Concomitant]
     Dosage: UNK UNK, QD
     Route: 048
     Dates: start: 20100901
  4. CRESTOR [Concomitant]
     Dosage: 40 MG, QD
     Route: 048
     Dates: start: 20100901
  5. CALTRATE D [Concomitant]
     Dosage: UNK UNK, QD
     Route: 048
     Dates: start: 20101103
  6. ANTIBIOTICS [Concomitant]
     Dosage: UNK
     Dates: start: 20110301
  7. IRON [Concomitant]
     Dosage: UNK UNK, QD
     Route: 048
     Dates: start: 20110708
  8. OXYCONTIN [Concomitant]
     Dosage: UNK
     Route: 048
     Dates: start: 20110901

REACTIONS (1)
  - NEOPLASM MALIGNANT [None]
